FAERS Safety Report 6250435-X (Version None)
Quarter: 2009Q2

REPORT INFORMATION
  Report Type: 
  Country: None (occurrence: None)
  Receive Date: 20090630
  Receipt Date: 20090623
  Transmission Date: 20091009
  Serious: Yes (Other)
  Sender: FDA-Public Use
  Company Number: PHEH2009US06539

PATIENT
  Sex: Male

DRUGS (3)
  1. FORADIL [Suspect]
     Dosage: UNK
     Dates: start: 20010101
  2. KLONOPIN [Concomitant]
  3. ATIVAN [Concomitant]

REACTIONS (1)
  - PNEUMONIA [None]
